FAERS Safety Report 11191675 (Version 1)
Quarter: 2015Q2

REPORT INFORMATION
  Report Type: Spontaneous
  Country: IT (occurrence: None)
  Receive Date: 20150612
  Receipt Date: 20150612
  Transmission Date: 20150821
  Serious: Yes (Hospitalization)
  Sender: FDA-Public Use
  Company Number: FK201502657

PATIENT
  Age: 71 Year
  Sex: Female
  Weight: 54 kg

DRUGS (2)
  1. IRINOTECAN (MANUFACTURER UNKNOWN) (IRINOTECAN) (IRINOTECAN) [Suspect]
     Active Substance: IRINOTECAN
     Indication: COLON CANCER
     Dosage: CYCLICAL
     Route: 042
     Dates: start: 20140721, end: 20140728
  2. ERBITUX [Suspect]
     Active Substance: CETUXIMAB
     Indication: COLON CANCER
     Dosage: CYCLICAL
     Route: 042
     Dates: start: 20140721, end: 20140728

REACTIONS (3)
  - Diarrhoea [None]
  - Rash generalised [None]
  - Pruritus generalised [None]

NARRATIVE: CASE EVENT DATE: 20140721
